FAERS Safety Report 12402944 (Version 2)
Quarter: 2016Q3

REPORT INFORMATION
  Report Type: Spontaneous
  Country: IT (occurrence: IT)
  Receive Date: 20160525
  Receipt Date: 20160929
  Transmission Date: 20161109
  Serious: Yes (Death)
  Sender: FDA-Public Use
  Company Number: IT-ROCHE-1763299

PATIENT
  Age: 74 Year
  Sex: Male
  Weight: 60 kg

DRUGS (2)
  1. RITUXIMAB [Suspect]
     Active Substance: RITUXIMAB
     Indication: NON-HODGKIN^S LYMPHOMA
     Route: 065
     Dates: start: 20150930, end: 20160216
  2. RITUXIMAB [Suspect]
     Active Substance: RITUXIMAB
     Indication: NON-HODGKIN^S LYMPHOMA

REACTIONS (6)
  - Encephalopathy [Fatal]
  - Dysphonia [Fatal]
  - Product taste abnormal [Fatal]
  - Dysphagia [Fatal]
  - Coma [Fatal]
  - Eyelid ptosis [Fatal]

NARRATIVE: CASE EVENT DATE: 20160426
